FAERS Safety Report 6999799-X (Version None)
Quarter: 2010Q3

REPORT INFORMATION
  Report Type: 
  Country: None (occurrence: None)
  Receive Date: 20100920
  Receipt Date: 20100915
  Transmission Date: 20110219
  Serious: Yes (Hospitalization)
  Sender: FDA-Public Use
  Company Number: DE-BRISTOL-MYERS SQUIBB COMPANY-15258833

PATIENT
  Age: 83 Year
  Sex: Female
  Weight: 53 kg

DRUGS (2)
  1. ORENCIA [Suspect]
     Indication: RHEUMATOID ARTHRITIS
     Dosage: NO OF INFUSION IS 2
     Route: 042
     Dates: start: 20100609, end: 20100708
  2. BONIVA [Suspect]
     Indication: OSTEOPOROSIS
     Route: 042
     Dates: start: 20100201, end: 20100901

REACTIONS (3)
  - BLOOD CREATININE INCREASED [None]
  - PYREXIA [None]
  - URINARY TRACT INFECTION [None]
